FAERS Safety Report 23326388 (Version 1)
Quarter: 2023Q4

REPORT INFORMATION
  Report Type: Spontaneous
  Country: US (occurrence: US)
  Receive Date: 20231221
  Receipt Date: 20231221
  Transmission Date: 20240109
  Serious: No
  Sender: FDA-Public Use
  Company Number: US-009507513-2311USA008055

PATIENT
  Age: 5 Decade
  Sex: Female

DRUGS (1)
  1. KEYTRUDA [Suspect]
     Active Substance: PEMBROLIZUMAB
     Indication: Leiomyosarcoma metastatic
     Dosage: 200 MILLIGRAM, CYCLICAL (COMPLETED 11 CYCLES)

REACTIONS (1)
  - Fatigue [Unknown]
